FAERS Safety Report 24357829 (Version 1)
Quarter: 2024Q3

REPORT INFORMATION
  Report Type: Report from Study
  Country: US (occurrence: US)
  Receive Date: 20240924
  Receipt Date: 20240924
  Transmission Date: 20241017
  Serious: Yes (Death)
  Sender: CSL BEHRING
  Company Number: US-BEH-2024179054

PATIENT
  Age: 64 Year
  Sex: Male

DRUGS (3)
  1. PRIVIGEN [Suspect]
     Active Substance: HUMAN IMMUNOGLOBULIN G
     Indication: Plasma cell myeloma
     Dosage: 20 G (ON DAYS 1 EVERY 28 DAYS)
     Route: 042
     Dates: start: 202407
  2. PRIVIGEN [Suspect]
     Active Substance: HUMAN IMMUNOGLOBULIN G
     Dosage: 10 G (ON DAYS 1 EVERY 28 DAYS)
     Route: 042
     Dates: start: 202407
  3. POMALYST [Concomitant]
     Active Substance: POMALIDOMIDE
     Dosage: 4 MG

REACTIONS (1)
  - Death [Fatal]

NARRATIVE: CASE EVENT DATE: 20240908
